FAERS Safety Report 10312625 (Version 2)
Quarter: 2014Q3

REPORT INFORMATION
  Report Type: Spontaneous
  Country: KE (occurrence: KE)
  Receive Date: 20140718
  Receipt Date: 20140724
  Transmission Date: 20150326
  Serious: Yes (Death, Other)
  Sender: FDA-Public Use
  Company Number: KE-AMGEN-KENSP2014054013

PATIENT
  Age: 55 Year
  Sex: Male

DRUGS (11)
  1. NEUPOGEN [Suspect]
     Active Substance: FILGRASTIM
     Indication: PRODUCT USED FOR UNKNOWN INDICATION
     Dosage: 30 MG, 1 IN 1 (FOR MORE THAN 10 DAYS)
     Route: 065
  2. MABTHERA [Suspect]
     Active Substance: RITUXIMAB
     Indication: NON-HODGKIN^S LYMPHOMA
     Dosage: 680 MG (DAY 1), UNK
     Route: 042
     Dates: start: 201403
  3. ISONIAZID. [Concomitant]
     Active Substance: ISONIAZID
     Dosage: 75 MG, UNK
  4. ETHAMBUTOL [Concomitant]
     Active Substance: ETHAMBUTOL HYDROCHLORIDE
     Indication: TUBERCULOSIS
     Dosage: 275 MG, UNK
  5. CYCLOPHOSPHAMIDE. [Suspect]
     Active Substance: CYCLOPHOSPHAMIDE
     Indication: NON-HODGKIN^S LYMPHOMA
     Dosage: 360 MG (DAY 1), UNK
     Route: 042
  6. PREDNISOLONE. [Suspect]
     Active Substance: PREDNISOLONE
     Indication: NON-HODGKIN^S LYMPHOMA
     Dosage: 100 MG, 1 IN 1 D
     Route: 065
  7. RIFAMPICIN [Concomitant]
     Active Substance: RIFAMPIN
     Indication: TUBERCULOSIS
     Dosage: 150 MG, UNK
  8. VINCRISTINE [Suspect]
     Active Substance: VINCRISTINE
     Indication: NON-HODGKIN^S LYMPHOMA
     Dosage: 2 MG (DAY 1), UNK
     Route: 042
  9. DOXORUBICIN [Suspect]
     Active Substance: DOXORUBICIN
     Indication: NON-HODGKIN^S LYMPHOMA
     Dosage: 90 MG (DAY 1), UNK
     Route: 042
  10. PYRAZINAMIDE. [Concomitant]
     Active Substance: PYRAZINAMIDE
     Indication: TUBERCULOSIS
     Dosage: 400 MG, UNK
  11. PERFALGAN [Concomitant]
     Active Substance: ACETAMINOPHEN
     Indication: PYREXIA
     Dosage: 1 G, UNK

REACTIONS (11)
  - Non-Hodgkin^s lymphoma [Fatal]
  - Procedural haemorrhage [Unknown]
  - Chromaturia [Unknown]
  - Drug ineffective [Unknown]
  - Neutropenia [Unknown]
  - Embolism [Fatal]
  - Pancytopenia [Unknown]
  - Skin ulcer [Unknown]
  - Disseminated tuberculosis [Fatal]
  - Pulmonary tuberculosis [Unknown]
  - Deep vein thrombosis [Unknown]
